FAERS Safety Report 6102083-X (Version None)
Quarter: 2009Q1

REPORT INFORMATION
  Report Type: 
  Country: None (occurrence: None)
  Receive Date: 20090227
  Receipt Date: 20080305
  Transmission Date: 20090719
  Serious: Yes (Other)
  Sender: FDA-Public Use
  Company Number: 552227

PATIENT
  Age: 16 Year
  Sex: Male
  Weight: 77.1 kg

DRUGS (1)
  1. ACCUTANE [Suspect]
     Indication: ACNE
     Dates: start: 20000925, end: 20010214

REACTIONS (16)
  - ABDOMINAL PAIN [None]
  - ANXIETY [None]
  - COUGH [None]
  - CROHN'S DISEASE [None]
  - DEPRESSION [None]
  - EAR DISCOMFORT [None]
  - EMOTIONAL DISORDER [None]
  - EYE PAIN [None]
  - GASTROINTESTINAL DISORDER [None]
  - HEADACHE [None]
  - INFLAMMATORY BOWEL DISEASE [None]
  - LACRIMATION INCREASED [None]
  - PYREXIA [None]
  - RECTAL HAEMORRHAGE [None]
  - RHINORRHOEA [None]
  - STRESS [None]
